FAERS Safety Report 12286947 (Version 1)
Quarter: 2016Q2

REPORT INFORMATION
  Report Type: Spontaneous
  Country: DE (occurrence: DE)
  Receive Date: 20160420
  Receipt Date: 20160420
  Transmission Date: 20160815
  Serious: Yes (Hospitalization)
  Sender: FDA-Public Use
  Company Number: DE-PFIZER INC-2016147462

PATIENT
  Sex: Female

DRUGS (2)
  1. EZETROL [Concomitant]
     Active Substance: EZETIMIBE
     Dosage: UNK
  2. ARTHROTEC [Suspect]
     Active Substance: DICLOFENAC SODIUM\MISOPROSTOL
     Dosage: UNK
     Dates: start: 2012

REACTIONS (3)
  - Gastrointestinal inflammation [Recovered/Resolved]
  - Osteoarthritis [Unknown]
  - Osteoarthritis [Not Recovered/Not Resolved]

NARRATIVE: CASE EVENT DATE: 201508
